FAERS Safety Report 7053818-3 (Version None)
Quarter: 2010Q4

REPORT INFORMATION
  Report Type: 
  Country: None (occurrence: None)
  Receive Date: 20101020
  Receipt Date: 20101015
  Transmission Date: 20110411
  Serious: Yes (Hospitalization)
  Sender: FDA-Public Use
  Company Number: IT-BAYER-201042600GPV

PATIENT
  Age: 42 Year
  Sex: Male

DRUGS (4)
  1. ASPIRIN [Suspect]
     Dosage: TOTAL DAILY DOSE: 2500 MG
     Route: 048
     Dates: start: 20100824, end: 20100824
  2. BROMAZEPAM [Suspect]
     Dosage: TOTAL DAILY DOSE: 20 ML
     Route: 048
     Dates: start: 20100824, end: 20100824
  3. PLASIL [Suspect]
     Dosage: AS USED: 5 DF
     Route: 048
     Dates: start: 20100824, end: 20100824
  4. TORADOL [Suspect]
     Dosage: TOTAL DAILY DOSE: 5 ML
     Route: 048
     Dates: start: 20100824, end: 20100824

REACTIONS (1)
  - SUICIDE ATTEMPT [None]
